FAERS Safety Report 7528712-1 (Version None)
Quarter: 2011Q2

REPORT INFORMATION
  Report Type: 
  Country: None (occurrence: None)
  Receive Date: 20110607
  Receipt Date: 20110602
  Transmission Date: 20111010
  Serious: Yes (Death, Hospitalization)
  Sender: FDA-Public Use
  Company Number: US-ASTRAZENECA-2011SE34181

PATIENT
  Age: 87 Year
  Sex: Female

DRUGS (10)
  1. FENTANYL [Concomitant]
     Indication: PAIN
     Dosage: Q3D
     Route: 061
  2. SEROQUEL [Suspect]
     Indication: AGITATION
     Route: 048
     Dates: start: 20110101
  3. LORAZEPAM [Concomitant]
  4. TRAZODONE HCL [Concomitant]
  5. TRAMADOL HCL [Concomitant]
  6. ANTIBIOTICS [Concomitant]
     Dates: start: 20110414
  7. SEROQUEL [Suspect]
     Indication: SLEEP DISORDER
     Route: 048
     Dates: start: 20110101
  8. BLOOD PRESSURE MEDS [Concomitant]
  9. MIRTAZAPINE [Concomitant]
     Indication: ANTIDEPRESSANT THERAPY
  10. LIDODERM [Concomitant]
     Indication: BACK PAIN
     Route: 061

REACTIONS (4)
  - OFF LABEL USE [None]
  - DYSPNOEA [None]
  - INSOMNIA [None]
  - MYOCARDIAL INFARCTION [None]
